FAERS Safety Report 5904807-0 (Version None)
Quarter: 2008Q4

REPORT INFORMATION
  Report Type: 
  Country: None (occurrence: None)
  Receive Date: 20081001
  Receipt Date: 20080922
  Transmission Date: 20090506
  Serious: Yes (Hospitalization, Other)
  Sender: FDA-Public Use
  Company Number: US-MERCK-0809USA03664

PATIENT
  Age: 67 Year
  Sex: Male

DRUGS (3)
  1. DECADRON SRC [Suspect]
     Indication: MULTIPLE MYELOMA
     Route: 048
     Dates: start: 20050119
  2. THALOMID [Suspect]
     Indication: MULTIPLE MYELOMA
     Route: 048
     Dates: start: 20050119, end: 20050309
  3. ASPIRIN [Concomitant]
     Route: 065
     Dates: start: 20050119

REACTIONS (4)
  - DEEP VEIN THROMBOSIS [None]
  - DIABETES MELLITUS [None]
  - HAEMOGLOBIN DECREASED [None]
  - SINUS BRADYCARDIA [None]
